FAERS Safety Report 10224902 (Version 1)
Quarter: 2014Q2

REPORT INFORMATION
  Report Type: Spontaneous
  Country: CN (occurrence: CN)
  Receive Date: 20140609
  Receipt Date: 20140609
  Transmission Date: 20141212
  Serious: Yes (Hospitalization)
  Sender: FDA-Public Use
  Company Number: CN-GLAXOSMITHKLINE-B1001571A

PATIENT
  Age: 53 Year
  Sex: Female
  Weight: 66 kg

DRUGS (1)
  1. ZINACEF [Suspect]
     Indication: PRODUCT USED FOR UNKNOWN INDICATION
     Dosage: 1.5G PER DAY
     Route: 042
     Dates: start: 20131113, end: 20131114

REACTIONS (6)
  - Pyelonephritis [Recovered/Resolved]
  - Haematuria [Recovered/Resolved]
  - Micturition urgency [Recovered/Resolved]
  - Renal pain [Recovered/Resolved]
  - Pollakiuria [Recovered/Resolved]
  - Nephropathy toxic [Recovered/Resolved]
